FAERS Safety Report 9400264 (Version 1)
Quarter: 2013Q1

REPORT INFORMATION
  Report Type: Spontaneous
  Country: DK (occurrence: IT)
  Receive Date: 20130111
  Receipt Date: 20130111
  Transmission Date: 20140127
  Serious: Yes (Life-Threatening)
  Sender: FDA-Public Use
  Company Number: 2012MA013418

PATIENT
  Age: 46 Year
  Sex: Male

DRUGS (4)
  1. VINORELBINE INJECTION USP, 10 MG/ML PACKAGED IN 10 MG/ML (ATLLC)(VINORELBINE) [Suspect]
     Indication: NON-HODGKIN^S LYMPHOMA
     Dosage: ONE CYCLE OF 40 MG INTRAVENOUS INFUSION.
     Route: 042
     Dates: start: 20121022, end: 20121022
  2. GEMCITABINE HYDROCHLORIDE FOR INJECTION USP 1000 MG/VIAL (ATLLC)(GEMCITABINE) [Suspect]
     Indication: NON-HODGKIN^S LYMPHOMA
     Dosage: ONE CYCLE OF 1600 MG INTRAVENOUS INFUSION.
     Route: 042
     Dates: start: 20121022, end: 20121025
  3. ALOXI [Suspect]
     Indication: NON-HODGKIN^S LYMPHOMA
     Route: 042
     Dates: start: 20121022, end: 20121025
  4. HOLOXAN (IFOSFAMIDE) [Suspect]
     Indication: NON-HODGKIN^S LYMPHOMA
     Route: 042
     Dates: start: 20121022, end: 20121025

REACTIONS (4)
  - Toxic epidermal necrolysis [None]
  - Haemoglobin decreased [None]
  - Platelet count decreased [None]
  - White blood cell count decreased [None]
